FAERS Safety Report 11840869 (Version 1)
Quarter: 2015Q4

REPORT INFORMATION
  Report Type: Spontaneous
  Country: BR (occurrence: BR)
  Receive Date: 20151216
  Receipt Date: 20151216
  Transmission Date: 20160305
  Serious: Yes (Other)
  Sender: FDA-Public Use
  Company Number: BR-JNJFOC-20151210214

PATIENT
  Sex: Female

DRUGS (1)
  1. SIMPONI [Suspect]
     Active Substance: GOLIMUMAB
     Indication: FELTY^S SYNDROME
     Route: 058

REACTIONS (6)
  - Diabetes mellitus [Unknown]
  - Varicose vein [Unknown]
  - Product use issue [Unknown]
  - Off label use [Unknown]
  - Foot deformity [Unknown]
  - Felty^s syndrome [Unknown]
